FAERS Safety Report 7152608-0 (Version None)
Quarter: 2010Q4

REPORT INFORMATION
  Report Type: 
  Country: None (occurrence: None)
  Receive Date: 20101213
  Receipt Date: 20101207
  Transmission Date: 20110411
  Serious: Yes (Death)
  Sender: FDA-Public Use
  Company Number: CA-CELGENEUS-028-21880-10120881

PATIENT
  Sex: Female

DRUGS (12)
  1. REVLIMID [Suspect]
     Indication: MULTIPLE MYELOMA
     Route: 048
     Dates: start: 20090812
  2. ACTONEL [Concomitant]
     Route: 065
  3. TRACLEER [Concomitant]
     Route: 065
  4. FRAGMIN [Concomitant]
     Route: 065
  5. REVATIO [Concomitant]
     Route: 065
  6. DECADRON [Concomitant]
     Route: 065
  7. ADALAT [Concomitant]
     Route: 065
  8. LASIX [Concomitant]
     Route: 065
  9. CALCIUM [Concomitant]
     Route: 065
  10. VIGAMOX [Concomitant]
     Route: 065
  11. COLACE [Concomitant]
     Route: 065
  12. NAPROXEN [Concomitant]
     Route: 065

REACTIONS (1)
  - DEATH [None]
